FAERS Safety Report 10590186 (Version 1)
Quarter: 2014Q4

REPORT INFORMATION
  Report Type: Spontaneous
  Country: US (occurrence: US)
  Receive Date: 20141118
  Receipt Date: 20141118
  Transmission Date: 20150529
  Serious: No
  Sender: FDA-Public Use
  Company Number: US-PFIZER INC-2014310412

PATIENT
  Age: 32 Year
  Sex: Male
  Weight: 81.63 kg

DRUGS (3)
  1. VIAGRA [Suspect]
     Active Substance: SILDENAFIL CITRATE
     Dosage: 200 MG, UNK
     Dates: start: 2014
  2. VIAGRA [Suspect]
     Active Substance: SILDENAFIL CITRATE
     Dosage: UNK
     Dates: start: 2014
  3. MEDICAL MARIJUANA [Suspect]
     Active Substance: CANNABIS SATIVA SUBSP. INDICA TOP
     Indication: GLAUCOMA
     Dosage: UNK
     Dates: start: 2014

REACTIONS (3)
  - Erection increased [Not Recovered/Not Resolved]
  - Extra dose administered [Unknown]
  - Flushing [Recovering/Resolving]

NARRATIVE: CASE EVENT DATE: 2014
